FAERS Safety Report 18151656 (Version 1)
Quarter: 2020Q3

REPORT INFORMATION
  Report Type: Spontaneous
  Country: GB (occurrence: GB)
  Receive Date: 20200814
  Receipt Date: 20200814
  Transmission Date: 20201103
  Serious: Yes (Hospitalization)
  Sender: FDA-Public Use
  Company Number: GB-PFIZER INC-2020310737

PATIENT
  Age: 18 Year
  Sex: Female

DRUGS (1)
  1. SAYANA PRESS [Suspect]
     Active Substance: MEDROXYPROGESTERONE\MEDROXYPROGESTERONE ACETATE
     Indication: INJECTABLE CONTRACEPTION
     Dosage: UNK (104MG/0.65ML)
     Route: 058

REACTIONS (1)
  - Injection site abscess [Not Recovered/Not Resolved]
